FAERS Safety Report 21662265 (Version 1)
Quarter: 2022Q4

REPORT INFORMATION
  Report Type: Spontaneous
  Country: US (occurrence: US)
  Receive Date: 20221130
  Receipt Date: 20221130
  Transmission Date: 20230113
  Serious: Yes (Other)
  Sender: FDA-Public Use
  Company Number: US-PFIZER INC-202201325341

PATIENT
  Age: 73 Year
  Sex: Female
  Weight: 72.57 kg

DRUGS (2)
  1. GENOTROPIN [Suspect]
     Active Substance: SOMATROPIN
     Indication: Growth hormone deficiency
     Dosage: UNK, DAILY (0.03, UNIT OF MEASUREMENT UNKNOWN OTHER THAN 3 CLICKS EVERY DAY)
     Dates: start: 2002
  2. GENOTROPIN [Suspect]
     Active Substance: SOMATROPIN
     Indication: Pituitary-dependent Cushing^s syndrome

REACTIONS (2)
  - Colectomy [Recovering/Resolving]
  - Expired device used [Not Recovered/Not Resolved]

NARRATIVE: CASE EVENT DATE: 20211031
